FAERS Safety Report 8877468 (Version 1)
Quarter: 2012Q4

REPORT INFORMATION
  Report Type: Spontaneous
  Country: US (occurrence: None)
  Receive Date: 20121026
  Receipt Date: 20121026
  Transmission Date: 20130627
  Serious: Yes (Death)
  Sender: FDA-Public Use
  Company Number: None

PATIENT
  Age: 79 Year
  Sex: Male
  Weight: 68.04 kg

DRUGS (2)
  1. ALTEPLASE [Suspect]
     Route: 014
  2. REOPRO [Suspect]
     Route: 014

REACTIONS (2)
  - Haemorrhage [None]
  - Brain death [None]
